FAERS Safety Report 7769673-X (Version None)
Quarter: 2011Q3

REPORT INFORMATION
  Report Type: 
  Country: None (occurrence: None)
  Receive Date: 20110922
  Receipt Date: 20110413
  Transmission Date: 20111222
  Serious: No
  Sender: FDA-Public Use
  Company Number: US-ASTRAZENECA-2009UW17745

PATIENT
  Age: 17917 Day
  Sex: Male
  Weight: 89.4 kg

DRUGS (9)
  1. SEROQUEL [Suspect]
     Dosage: 100 MG AT 8:00 P.M. FOR TWO DAYS, THEN INCREASE TO TWO AT 8:00 P.M
     Route: 048
     Dates: start: 20040715
  2. PHENERGAN HCL [Concomitant]
     Dates: start: 20051011
  3. SEROQUEL [Suspect]
     Indication: DEPRESSION
     Route: 048
     Dates: start: 20040101, end: 20070101
  4. DEPAKOTE ER [Concomitant]
     Dosage: 500 MG 1 QAM AND 3 QHS
     Dates: start: 20040505
  5. SEROQUEL [Suspect]
     Indication: MANIA
     Route: 048
     Dates: start: 20040101, end: 20070101
  6. SEROQUEL [Suspect]
     Dosage: 100 MG AT 8:00 P.M. FOR TWO DAYS, THEN INCREASE TO TWO AT 8:00 P.M
     Route: 048
     Dates: start: 20040715
  7. SEROQUEL [Suspect]
     Dosage: 100 MG AT 8:00 P.M. FOR TWO DAYS, THEN INCREASE TO TWO AT 8:00 P.M
     Route: 048
     Dates: start: 20040715
  8. SEROQUEL [Suspect]
     Indication: BIPOLAR DISORDER
     Route: 048
     Dates: start: 20040101, end: 20070101
  9. GEODON [Concomitant]
     Route: 048
     Dates: start: 20040915

REACTIONS (4)
  - TYPE 2 DIABETES MELLITUS [None]
  - BLOOD CHOLESTEROL INCREASED [None]
  - OBESITY [None]
  - HYPERLIPIDAEMIA [None]
